FAERS Safety Report 20488407 (Version 2)
Quarter: 2022Q1

REPORT INFORMATION
  Report Type: Spontaneous
  Country: GB (occurrence: GB)
  Receive Date: 20220218
  Receipt Date: 20220325
  Transmission Date: 20220424
  Serious: Yes (Other)
  Sender: FDA-Public Use
  Company Number: GB-MHRA-WEBCOVID-202202041539046710-HK6VD

PATIENT
  Age: 55 Year
  Sex: Male
  Weight: 77 kg

DRUGS (1)
  1. OXALIPLATIN [Suspect]
     Active Substance: OXALIPLATIN
     Indication: Chemotherapy
     Dosage: 2 MILLIGRAM/SQ. METER, UNK
     Route: 065
     Dates: start: 20211201, end: 20220104

REACTIONS (5)
  - Hypoaesthesia oral [Not Recovered/Not Resolved]
  - Hot flush [Recovered/Resolved]
  - Rash erythematous [Recovered/Resolved]
  - Rash [Recovered/Resolved]
  - Paraesthesia oral [Unknown]

NARRATIVE: CASE EVENT DATE: 20220104
